FAERS Safety Report 5616267-8 (Version None)
Quarter: 2008Q1

REPORT INFORMATION
  Report Type: 
  Country: None (occurrence: None)
  Receive Date: 20080205
  Receipt Date: 20080122
  Transmission Date: 20080703
  Serious: Yes (Other)
  Sender: FDA-Public Use
  Company Number: SPV1-2007-04957

PATIENT
  Age: 8 Year
  Sex: Male
  Weight: 32.6 kg

DRUGS (5)
  1. CARBATROL [Suspect]
     Indication: CONVULSION
     Dosage: 700 MG, 1X/DAY:QD, ORAL; 200 MG, 2X/DAY:BID, ORAL; 200 MG, 1X/DAY:QD, ORAL
     Route: 048
     Dates: start: 20050101, end: 20071001
  2. CARBATROL [Suspect]
     Indication: CONVULSION
     Dosage: 700 MG, 1X/DAY:QD, ORAL; 200 MG, 2X/DAY:BID, ORAL; 200 MG, 1X/DAY:QD, ORAL
     Route: 048
     Dates: start: 20071001, end: 20071114
  3. CARBATROL [Suspect]
     Indication: CONVULSION
     Dosage: 700 MG, 1X/DAY:QD, ORAL; 200 MG, 2X/DAY:BID, ORAL; 200 MG, 1X/DAY:QD, ORAL
     Route: 048
     Dates: start: 20071115
  4. CONCERTA [Suspect]
     Indication: ATTENTION DEFICIT/HYPERACTIVITY DISORDER
     Dosage: 54 MG, 1X/DAY:QD, ORAL
     Route: 048
  5. GEODON [Suspect]
     Indication: BIPOLAR DISORDER
     Dosage: 25MG, 1X/DAY:QD, ORAL
     Route: 048

REACTIONS (1)
  - NO ADVERSE EVENT [None]
